FAERS Safety Report 9767975 (Version 1)
Quarter: 2013Q4

REPORT INFORMATION
  Report Type: Spontaneous
  Country: US (occurrence: None)
  Receive Date: 20131003
  Receipt Date: 20131003
  Transmission Date: 20140711
  Serious: Yes (Death)
  Sender: FDA-Public Use
  Company Number: 2013AP008499

PATIENT
  Age: 42 Year
  Sex: Female

DRUGS (3)
  1. BUPROPION HYDROCHLORIDE TABLETS [Suspect]
     Route: 048
  2. CITALOPRAM HYDROBROMIDE [Suspect]
  3. MORPHINE [Suspect]

REACTIONS (1)
  - Drug abuse [None]
